FAERS Safety Report 6230236-9 (Version None)
Quarter: 2009Q2

REPORT INFORMATION
  Report Type: 
  Country: None (occurrence: None)
  Receive Date: 20090615
  Receipt Date: 20090602
  Transmission Date: 20091009
  Serious: Yes (Other)
  Sender: FDA-Public Use
  Company Number: DE-MYLANLABS-2009S1009826

PATIENT
  Age: 77 Year
  Sex: Male
  Weight: 77 kg

DRUGS (5)
  1. ENALAPRIL [Suspect]
     Indication: HYPERTENSION
     Dosage: DAILY DOSE: 40 MG MILLGRAM(S) EVERY DAY
  2. HYDROCHLOROTHIAZIDE [Suspect]
     Indication: HYPERTENSION
     Dosage: DAILY DOSE: 1 DF DOSAGE FORM EVERY DAY
  3. VERAPAMIL [Concomitant]
     Indication: HYPERTENSION
     Dosage: DAILY DOSE: 360 MG MILLGRAM(S) EVERY DAY
  4. SIMVASTAD [Concomitant]
     Indication: HYPERLIPIDAEMIA
  5. PHENPROCOUMON [Concomitant]
     Indication: ANTICOAGULANT THERAPY

REACTIONS (1)
  - GYNAECOMASTIA [None]
